FAERS Safety Report 7277651-2 (Version None)
Quarter: 2011Q1

REPORT INFORMATION
  Report Type: 
  Country: None (occurrence: None)
  Receive Date: 20110207
  Receipt Date: 20110126
  Transmission Date: 20110831
  Serious: Yes (Death, Hospitalization)
  Sender: FDA-Public Use
  Company Number: US-SANOFI-AVENTIS-2011SA003861

PATIENT
  Age: 87 Year
  Sex: Female
  Weight: 45.9 kg

DRUGS (6)
  1. PRAZOSIN HCL [Concomitant]
  2. MULTAQ [Suspect]
     Route: 065
  3. COZAAR [Concomitant]
  4. LASIX [Concomitant]
  5. LOPRESSOR [Concomitant]
  6. CLONIDINE [Concomitant]

REACTIONS (4)
  - RENAL FAILURE [None]
  - ASTHENIA [None]
  - MALAISE [None]
  - BLOOD CREATININE INCREASED [None]
